FAERS Safety Report 12921436 (Version 2)
Quarter: 2017Q2

REPORT INFORMATION
  Report Type: Spontaneous
  Country: US (occurrence: US)
  Receive Date: 20161108
  Receipt Date: 20170508
  Transmission Date: 20170830
  Serious: No
  Sender: FDA-Public Use
  Company Number: US-GLAXOSMITHKLINE-US2016163425

PATIENT
  Age: 42 Year
  Sex: Female

DRUGS (3)
  1. PROAIR HFA [Suspect]
     Active Substance: ALBUTEROL SULFATE
     Indication: ASTHMA
     Dosage: UNK
     Dates: end: 20161013
  2. VENTOLIN HFA [Suspect]
     Active Substance: ALBUTEROL SULFATE
     Indication: ASTHMA
     Dosage: 1 PUFF(S), PRN
     Route: 055
     Dates: start: 20161013
  3. PULMICORT TURBUHALER [Suspect]
     Active Substance: BUDESONIDE
     Indication: ASTHMA
     Dosage: UNK

REACTIONS (5)
  - Product cleaning inadequate [Unknown]
  - Asthma [Unknown]
  - Medication error [Unknown]
  - Exposure during pregnancy [Unknown]
  - Device use error [Unknown]

NARRATIVE: CASE EVENT DATE: 2016
